FAERS Safety Report 4803988-X (Version None)
Quarter: 2005Q3

REPORT INFORMATION
  Report Type: 
  Country: None (occurrence: None)
  Receive Date: 20050920
  Receipt Date: 20050711
  Transmission Date: 20060218
  Serious: No
  Sender: FDA-Public Use
  Company Number: US-YAMANOUCHI-YPA20050374

PATIENT
  Sex: Female
  Weight: 78.0187 kg

DRUGS (2)
  1. VESICARE [Suspect]
     Indication: HYPERTONIC BLADDER
     Dosage: 10 MG QD PO
     Route: 048
     Dates: start: 20050301
  2. PREMARIN / NEZ / [Concomitant]

REACTIONS (2)
  - DRUG INEFFECTIVE [None]
  - DRY THROAT [None]
